FAERS Safety Report 16156003 (Version 1)
Quarter: 2019Q2

REPORT INFORMATION
  Report Type: Spontaneous
  Country: GB (occurrence: GB)
  Receive Date: 20190404
  Receipt Date: 20190404
  Transmission Date: 20190711
  Serious: Yes (Disabling, Other)
  Sender: FDA-Public Use
  Company Number: GB-TEVA-2019-GB-1033428

PATIENT
  Age: 53 Year
  Sex: Female
  Weight: 138 kg

DRUGS (1)
  1. LETROZOLE. [Suspect]
     Active Substance: LETROZOLE
     Dates: start: 20180907

REACTIONS (4)
  - Dyspnoea [Unknown]
  - Abnormal weight gain [Unknown]
  - Visual impairment [Unknown]
  - Hypertension [Recovered/Resolved]

NARRATIVE: CASE EVENT DATE: 20180907
